FAERS Safety Report 24463728 (Version 1)
Quarter: 2024Q4

REPORT INFORMATION
  Report Type: Report from Study
  Country: US (occurrence: US)
  Receive Date: 20241018
  Receipt Date: 20241018
  Transmission Date: 20250114
  Serious: No
  Sender: ROCHE
  Company Number: US-ROCHE-3481854

PATIENT
  Age: 51 Year
  Sex: Female
  Weight: 79.33 kg

DRUGS (19)
  1. XOLAIR [Suspect]
     Active Substance: OMALIZUMAB
     Indication: Asthma
     Route: 058
  2. XOLAIR [Suspect]
     Active Substance: OMALIZUMAB
     Indication: Asthma
  3. ALBUTEROL SULFATE [Concomitant]
     Active Substance: ALBUTEROL SULFATE
  4. GABAPENTIN [Concomitant]
     Active Substance: GABAPENTIN
  5. ZAFIRLUKAST [Concomitant]
     Active Substance: ZAFIRLUKAST
  6. BREZTRI [Concomitant]
     Active Substance: BUDESONIDE\FORMOTEROL\GLYCOPYRROLATE
  7. CARVEDILOL [Concomitant]
     Active Substance: CARVEDILOL
  8. LANTUS [Concomitant]
     Active Substance: INSULIN GLARGINE
  9. FUROSEMIDE SODIUM [Concomitant]
     Active Substance: FUROSEMIDE SODIUM
  10. UNSPECIFIED INGREDIENT [Concomitant]
     Active Substance: UNSPECIFIED INGREDIENT
  11. METFORMIN [Concomitant]
     Active Substance: METFORMIN HYDROCHLORIDE
  12. LOSARTAN [Concomitant]
     Active Substance: LOSARTAN
  13. PROVENTIL [Concomitant]
     Active Substance: ALBUTEROL
  14. SPIRONOLACTONE [Concomitant]
     Active Substance: SPIRONOLACTONE
  15. TRULICITY [Concomitant]
     Active Substance: DULAGLUTIDE
  16. ALBUTEROL [Concomitant]
     Active Substance: ALBUTEROL
  17. ELIPTA [Concomitant]
  18. MONTELUKAST [Concomitant]
     Active Substance: MONTELUKAST
  19. ACETYLCYSTEINE [Concomitant]
     Active Substance: ACETYLCYSTEINE

REACTIONS (2)
  - Off label use [Unknown]
  - No adverse event [Unknown]
